FAERS Safety Report 5714724-7 (Version None)
Quarter: 2008Q2

REPORT INFORMATION
  Report Type: 
  Country: None (occurrence: None)
  Receive Date: 20080423
  Receipt Date: 20080415
  Transmission Date: 20081010
  Serious: Yes (Life-Threatening)
  Sender: FDA-Public Use
  Company Number: JP-BRISTOL-MYERS SQUIBB COMPANY-14142855

PATIENT
  Age: 72 Year
  Sex: Female

DRUGS (10)
  1. MITOMYCIN [Suspect]
     Indication: ANAL CANCER
     Dosage: FORM = INJ. ROUTE - DR
     Dates: start: 20060208, end: 20060313
  2. FLUOROURACIL [Suspect]
     Indication: ANAL CANCER
     Dosage: FORM = INJECTION, STRENGTH 250, 750 MG/M2
     Route: 042
     Dates: start: 20060209, end: 20060314
  3. BLOPRESS [Concomitant]
     Route: 048
     Dates: start: 20060125, end: 20060414
  4. ALFAROL [Concomitant]
     Route: 048
     Dates: start: 20060125, end: 20060414
  5. AZUNOL [Concomitant]
     Route: 065
     Dates: start: 20060213
  6. ZINC OXIDE [Concomitant]
     Route: 061
     Dates: start: 20060303
  7. EKSALB [Concomitant]
     Route: 061
     Dates: start: 20060303
  8. RINDERON [Concomitant]
     Route: 061
     Dates: start: 20080307
  9. LAXOBERON [Concomitant]
     Route: 048
     Dates: start: 20060311
  10. ENEMA CASEN [Concomitant]
     Route: 054
     Dates: start: 20060318

REACTIONS (1)
  - THROMBOCYTOPENIA [None]
